FAERS Safety Report 7995804-2 (Version None)
Quarter: 2011Q4

REPORT INFORMATION
  Report Type: 
  Country: None (occurrence: None)
  Receive Date: 20111220
  Receipt Date: 20111209
  Transmission Date: 20120403
  Serious: Yes (Hospitalization)
  Sender: FDA-Public Use
  Company Number: US-JNJFOC-20110901944

PATIENT
  Sex: Female
  Weight: 77.9 kg

DRUGS (11)
  1. FOLIC ACID [Concomitant]
  2. TACLONEX [Concomitant]
  3. REMICADE [Suspect]
     Indication: PSORIASIS
     Route: 042
     Dates: start: 20091027
  4. ROPINIROLE [Concomitant]
     Route: 048
  5. PROPRANOLOL [Concomitant]
     Indication: BLOOD PRESSURE
     Route: 048
  6. OMEPRAZOLE [Concomitant]
     Route: 048
  7. PREMARIN [Concomitant]
  8. REMICADE [Suspect]
     Route: 042
     Dates: start: 20060424, end: 20090507
  9. METHOTREXATE [Suspect]
     Indication: PSORIASIS
     Dates: start: 20100101
  10. LOVASTATIN [Concomitant]
  11. ENALAPRIL [Concomitant]
     Route: 048

REACTIONS (2)
  - HEPATIC ENZYME INCREASED [None]
  - CYTOMEGALOVIRUS INFECTION [None]
